FAERS Safety Report 5129634-6 (Version None)
Quarter: 2006Q4

REPORT INFORMATION
  Report Type: 
  Country: None (occurrence: None)
  Receive Date: 20061012
  Receipt Date: 20061002
  Transmission Date: 20070319
  Serious: Yes (Other)
  Sender: FDA-Public Use
  Company Number: 2006120112

PATIENT
  Age: 68 Year
  Sex: Female
  Weight: 72.5755 kg

DRUGS (14)
  1. LIPITOR [Suspect]
     Dosage: 20 MG (20 MG, 1 IN 1 D)
     Dates: end: 20060928
  2. TRICOR [Suspect]
     Indication: BLOOD TRIGLYCERIDES INCREASED
  3. NYSTATIN [Suspect]
  4. ACULAR PF                        (KETOROLAC TROMETHAMINE) [Suspect]
     Dates: start: 20060301, end: 20060524
  5. POTASSIUM CHLORIDE [Concomitant]
  6. MAGNESIUM (MAGNESIUM) [Concomitant]
  7. ASPIRIN [Concomitant]
  8. NORVASC [Concomitant]
  9. LEVOTHYROXINE SODIUM [Concomitant]
  10. HYDROCHLORZIDE (HYDROCHLOROTHIAZIDE) [Concomitant]
  11. MULTIVITAMIN [Concomitant]
  12. LOTEMAX [Concomitant]
  13. VITAMIN E [Concomitant]
  14. VITAMIN C (VITAMIN C) [Concomitant]

REACTIONS (6)
  - ARTHRALGIA [None]
  - DRUG INEFFECTIVE [None]
  - DRUG INTERACTION [None]
  - MACULAR HOLE [None]
  - MYALGIA [None]
  - PAIN IN EXTREMITY [None]
